FAERS Safety Report 6680786-6 (Version None)
Quarter: 2010Q2

REPORT INFORMATION
  Report Type: 
  Country: None (occurrence: None)
  Receive Date: 20100414
  Receipt Date: 20100412
  Transmission Date: 20101027
  Serious: Yes (Death)
  Sender: FDA-Public Use
  Company Number: US-ASTRAZENECA-2009SE15022

PATIENT
  Sex: Male

DRUGS (11)
  1. SEROQUEL [Suspect]
     Route: 048
     Dates: start: 20000519
  2. ACCUPRIL [Concomitant]
     Route: 048
     Dates: start: 20000519
  3. ALLEGRA D 24 HOUR [Concomitant]
     Dates: start: 20000515
  4. ALBUTEROL [Concomitant]
     Dates: start: 20000515
  5. SEREVENT [Concomitant]
     Dates: start: 20010217
  6. PREDNISONE TAB [Concomitant]
     Dosage: 5 TO 20 MG
     Dates: start: 20010407
  7. AMOXICILLIN [Concomitant]
     Dates: start: 20010430
  8. FLOVENT [Concomitant]
     Dates: start: 20010430
  9. IBUPROFEN [Concomitant]
     Dates: start: 20010627
  10. COMBIVENT [Concomitant]
     Dates: start: 20010527
  11. FUROSEMIDE [Concomitant]
     Dates: start: 20010723

REACTIONS (2)
  - ARRHYTHMIA [None]
  - TYPE 2 DIABETES MELLITUS [None]
